FAERS Safety Report 5751618-5 (Version None)
Quarter: 2008Q2

REPORT INFORMATION
  Report Type: 
  Country: None (occurrence: None)
  Receive Date: 20080528
  Receipt Date: 20080520
  Transmission Date: 20081010
  Serious: Yes (Other)
  Sender: FDA-Public Use
  Company Number: PHHO2008GB00504

PATIENT
  Sex: Female
  Weight: 111.5 kg

DRUGS (5)
  1. ZOLEDRONIC ACID [Suspect]
     Indication: METASTASES TO BONE
     Dosage: 4MG
     Route: 042
     Dates: start: 20060123, end: 20070705
  2. CALCIUM [Concomitant]
  3. VITAMIN D [Concomitant]
  4. RADIATION THERAPY [Concomitant]
  5. TAXOL [Concomitant]

REACTIONS (6)
  - BONE DISORDER [None]
  - GINGIVAL PAIN [None]
  - ORAL PAIN [None]
  - OSTEONECROSIS [None]
  - TOOTH DISORDER [None]
  - TOOTHACHE [None]
